FAERS Safety Report 24816321 (Version 1)
Quarter: 2025Q1

REPORT INFORMATION
  Report Type: Spontaneous
  Country: US (occurrence: US)
  Receive Date: 20250107
  Receipt Date: 20250107
  Transmission Date: 20250409
  Serious: No
  Sender: PFIZER
  Company Number: US-PFIZER INC-202500000397

PATIENT
  Age: 65 Year
  Sex: Female

DRUGS (29)
  1. CLINDAMYCIN HYDROCHLORIDE [Suspect]
     Active Substance: CLINDAMYCIN HYDROCHLORIDE
     Dates: start: 20211114
  2. COSENTYX [Concomitant]
     Active Substance: SECUKINUMAB
     Dates: start: 201810, end: 201901
  3. ORENCIA [Concomitant]
     Active Substance: ABATACEPT
     Dates: start: 201905
  4. COVID-19 VACCINE [Concomitant]
     Dates: start: 20211001
  5. HEPATITIS A VACCINE NOS [Concomitant]
     Active Substance: HEPATITIS A VACCINE, INACTIVATED
     Dates: start: 20100513
  6. PNEUMOCOCCAL VACCINE POLYVALENT [Concomitant]
     Active Substance: PNEUMOCOCCAL VACCINE POLYVALENT
     Dates: start: 20151020
  7. PNEUMOCOCCAL VACCINE POLYVALENT [Concomitant]
     Active Substance: PNEUMOCOCCAL VACCINE POLYVALENT
     Dates: start: 20190204
  8. AREXVY [Concomitant]
     Active Substance: RECOMBINANT RESPIRATORY SYNCYTIAL VIRUS PRE-FUSION F PROTEIN ANTIGEN
  9. FERROUS SULFATE [Concomitant]
     Active Substance: FERROUS SULFATE
     Dosage: 325 MILLIGRAM, QD
     Route: 048
  10. XYZAL [Concomitant]
     Active Substance: LEVOCETIRIZINE DIHYDROCHLORIDE
     Dosage: 5 MILLIGRAM, QD
     Route: 048
     Dates: start: 20190307
  11. SINGULAIR [Concomitant]
     Active Substance: MONTELUKAST SODIUM
     Dosage: 10 MILLIGRAM, QD
     Route: 048
  12. LEVOFLOXACIN [Concomitant]
     Active Substance: LEVOFLOXACIN
  13. PIPERACILLIN AND TAZOBACTAM [Concomitant]
     Active Substance: PIPERACILLIN SODIUM\TAZOBACTAM SODIUM
  14. BUMETANIDE [Concomitant]
     Active Substance: BUMETANIDE
  15. MELOXICAM [Concomitant]
     Active Substance: MELOXICAM
  16. ENOXAPARIN [Concomitant]
     Active Substance: ENOXAPARIN
  17. IRBESARTAN [Concomitant]
     Active Substance: IRBESARTAN
     Indication: Hypertension
     Dosage: 75 MILLIGRAM, BID
  18. INSULIN ASPART [Concomitant]
     Active Substance: INSULIN ASPART
  19. ACETAMINOPHEN [Concomitant]
     Active Substance: ACETAMINOPHEN
  20. INSULIN DETEMIR [Concomitant]
     Active Substance: INSULIN DETEMIR
  21. ABATACEPT [Concomitant]
     Active Substance: ABATACEPT
  22. ATENOLOL [Concomitant]
     Active Substance: ATENOLOL
     Indication: Hypertension
  23. AMLODIPINE [Concomitant]
     Active Substance: AMLODIPINE BESYLATE
     Indication: Hypertension
     Dosage: 2.5 MILLIGRAM, QD
  24. ERGOCALCIFEROL [Concomitant]
     Active Substance: ERGOCALCIFEROL
  25. CALCIUM [Concomitant]
     Active Substance: CALCIUM
  26. LEVAQUIN [Concomitant]
     Active Substance: LEVOFLOXACIN
  27. METFORMIN [Concomitant]
     Active Substance: METFORMIN HYDROCHLORIDE
  28. IRON [Concomitant]
     Active Substance: IRON
     Indication: Iron deficiency anaemia
  29. TIZANIDINE [Concomitant]
     Active Substance: TIZANIDINE

REACTIONS (3)
  - Nausea [Unknown]
  - Vomiting [Unknown]
  - Abdominal pain [Unknown]
